FAERS Safety Report 5845552-X (Version None)
Quarter: 2008Q3

REPORT INFORMATION
  Report Type: 
  Country: None (occurrence: None)
  Receive Date: 20080814
  Receipt Date: 20080808
  Transmission Date: 20090109
  Serious: Yes (Other)
  Sender: FDA-Public Use
  Company Number: US-JNJCH-2008019990

PATIENT
  Age: 48 Year
  Sex: Female
  Weight: 81.6 kg

DRUGS (1)
  1. LISTERINE WHITENING QUICK DISSOLVING STRIPS [Suspect]
     Indication: DENTAL CARE
     Dosage: TEXT:1 STRIP ON TOP AND LOWER TEETH ONE TIME
     Route: 048
     Dates: start: 20080805, end: 20080805

REACTIONS (3)
  - APPLICATION SITE BURN [None]
  - EATING DISORDER [None]
  - LIP BLISTER [None]
